FAERS Safety Report 4397955-0 (Version None)
Quarter: 2004Q3

REPORT INFORMATION
  Report Type: 
  Country: None (occurrence: None)
  Receive Date: 20040713
  Receipt Date: 20040702
  Transmission Date: 20050211
  Serious: Yes (Hospitalization)
  Sender: FDA-Public Use
  Company Number: WAES 0307USA01223

PATIENT
  Age: 28 Year
  Sex: Male
  Weight: 81.6475 kg

DRUGS (13)
  1. PIPERACILLIN SODIUM / TAZOBACTAM SODIUM [Suspect]
     Indication: ABDOMINAL INFECTION
     Dosage: 3.375 GM/QID/IV
     Route: 042
     Dates: start: 20020409, end: 20020415
  2. DEMEROL [Concomitant]
  3. FLAGYL [Concomitant]
  4. PEPCID [Concomitant]
  5. TYLENOL [Concomitant]
  6. VERSED [Concomitant]
  7. ZOSYN [Concomitant]
  8. FENTANYL [Concomitant]
  9. MORPHINE SULFATE [Concomitant]
  10. ROCURONIUM BROMIDE [Concomitant]
  11. SEVOFLURANE [Concomitant]
  12. SUCCINYLCHOLINE BROMIDE [Concomitant]
  13. THIOPENTAL SODIUM [Concomitant]

REACTIONS (3)
  - ABDOMINAL ABSCESS [None]
  - ABDOMINAL DISTENSION [None]
  - POSTOPERATIVE INFECTION [None]
